FAERS Safety Report 6626572-4 (Version None)
Quarter: 2010Q1

REPORT INFORMATION
  Report Type: 
  Country: None (occurrence: None)
  Receive Date: 20100309
  Receipt Date: 20100309
  Transmission Date: 20100710
  Serious: No
  Sender: FDA-Public Use
  Company Number: None

PATIENT
  Age: 68 Year
  Sex: Female
  Weight: 90.7194 kg

DRUGS (2)
  1. BUDESONIDE [Suspect]
     Dosage: 0.5 MG BID NEB
     Dates: start: 20091201
  2. BUDESONIDE [Suspect]
     Dosage: 0.5 MG BID NEB
     Dates: start: 20100301

REACTIONS (2)
  - BRONCHITIS [None]
  - BRONCHOSPASM [None]
